FAERS Safety Report 4746574-2 (Version None)
Quarter: 2005Q3

REPORT INFORMATION
  Report Type: 
  Country: None (occurrence: None)
  Receive Date: 20050816
  Receipt Date: 20050816
  Transmission Date: 20060218
  Serious: Yes (Hospitalization)
  Sender: FDA-Public Use
  Company Number: None

PATIENT
  Age: 42 Year
  Sex: Male
  Weight: 104.5541 kg

DRUGS (1)
  1. EXCEDRIN [Suspect]
     Indication: HEADACHE
     Dosage: PRN

REACTIONS (7)
  - ASTHENIA [None]
  - DIZZINESS [None]
  - DUODENAL ULCER [None]
  - FAECES DISCOLOURED [None]
  - GASTRITIS [None]
  - HIATUS HERNIA [None]
  - THROMBOSIS [None]
